FAERS Safety Report 9403715 (Version 2)
Quarter: 2013Q3

REPORT INFORMATION
  Report Type: Report from Study
  Country: US (occurrence: US)
  Receive Date: 20130717
  Receipt Date: 20130925
  Transmission Date: 20140515
  Serious: Yes (Death, Hospitalization)
  Sender: FDA-Public Use
  Company Number: US-ROCHE-1248072

PATIENT
  Sex: Female
  Weight: 40.41 kg

DRUGS (1)
  1. VEMURAFENIB [Suspect]
     Indication: METASTATIC MALIGNANT MELANOMA
     Dosage: MOST RECENT DOSE RECEIVED ON 01/JUL/2013
     Route: 048

REACTIONS (8)
  - Decreased appetite [Unknown]
  - Diet refusal [Unknown]
  - Unevaluable event [Unknown]
  - Anaemia [Unknown]
  - Unevaluable event [Unknown]
  - Weight decreased [Unknown]
  - Dehydration [Unknown]
  - Death [Fatal]
